FAERS Safety Report 7133165-1 (Version None)
Quarter: 2010Q4

REPORT INFORMATION
  Report Type: 
  Country: None (occurrence: None)
  Receive Date: 20101202
  Receipt Date: 20101123
  Transmission Date: 20110411
  Serious: Yes (Death, Life-Threatening)
  Sender: FDA-Public Use
  Company Number: Z0003878C

PATIENT
  Sex: Male
  Weight: 65 kg

DRUGS (2)
  1. OFATUMUMAB [Suspect]
     Route: 042
     Dates: start: 20100118
  2. CHLORAMBUCIL [Suspect]
     Route: 048
     Dates: start: 20100118

REACTIONS (1)
  - RESPIRATORY FAILURE [None]
